FAERS Safety Report 7091875-9 (Version None)
Quarter: 2010Q4

REPORT INFORMATION
  Report Type: 
  Country: None (occurrence: None)
  Receive Date: 20101109
  Receipt Date: 20101028
  Transmission Date: 20110411
  Serious: Yes (Hospitalization)
  Sender: FDA-Public Use
  Company Number: US-ACTELION-A-US2004-07752

PATIENT
  Sex: Female

DRUGS (9)
  1. BOSENTAN TABLET 125 MG US [Suspect]
     Indication: PULMONARY ARTERIAL HYPERTENSION
     Dosage: 125 MG, BID
     Route: 048
     Dates: end: 20090801
  2. BOSENTAN TABLET 125 MG US [Suspect]
     Route: 048
     Dates: start: 20040102
  3. BOSENTAN TABLET 125 MG US [Suspect]
     Dosage: 62.5 MG, BID
     Route: 048
     Dates: start: 20090831
  4. BOSENTAN TABLET 125 MG US [Suspect]
     Dosage: UNK
     Route: 048
     Dates: start: 20051003, end: 20100820
  5. VENTAVIS [Concomitant]
     Indication: PULMONARY ARTERIAL HYPERTENSION
  6. REVATIO [Concomitant]
     Indication: PULMONARY ARTERIAL HYPERTENSION
  7. AMBRISENTAN [Concomitant]
     Indication: PULMONARY ARTERIAL HYPERTENSION
     Dates: start: 20090816
  8. COUMADIN [Concomitant]
     Indication: PULMONARY ARTERIAL HYPERTENSION
  9. CALCIUM CHANNEL BLOCKERS [Concomitant]
     Indication: PULMONARY ARTERIAL HYPERTENSION
     Dosage: UNK

REACTIONS (3)
  - ALANINE AMINOTRANSFERASE INCREASED [None]
  - ASPARTATE AMINOTRANSFERASE INCREASED [None]
  - LIVER FUNCTION TEST ABNORMAL [None]
